FAERS Safety Report 12270322 (Version 1)
Quarter: 2016Q2

REPORT INFORMATION
  Report Type: Spontaneous
  Country: US (occurrence: US)
  Receive Date: 20160415
  Receipt Date: 20160415
  Transmission Date: 20160815
  Serious: No
  Sender: FDA-Public Use
  Company Number: US-009507513-1603USA009910

PATIENT
  Age: 28 Year
  Sex: Female
  Weight: 97.51 kg

DRUGS (1)
  1. NEXPLANON [Suspect]
     Active Substance: ETONOGESTREL
     Indication: CONTRACEPTION
     Dosage: ONE ROD/ ONCE PER THREE YEARS
     Route: 059
     Dates: start: 201311

REACTIONS (4)
  - Device breakage [Not Recovered/Not Resolved]
  - Implant site fibrosis [Unknown]
  - Polymenorrhoea [Unknown]
  - Haemorrhage [Recovering/Resolving]

NARRATIVE: CASE EVENT DATE: 20160318
